FAERS Safety Report 5424277-9 (Version None)
Quarter: 2007Q3

REPORT INFORMATION
  Report Type: 
  Country: None (occurrence: None)
  Receive Date: 20070823
  Receipt Date: 20070807
  Transmission Date: 20080115
  Serious: No
  Sender: FDA-Public Use
  Company Number: US-BOEHRINGER INGELHEIM PHARMACEUTICALS, INC.-2007-BP-17757BP

PATIENT
  Age: 82 Year
  Sex: Female
  Weight: 59 kg

DRUGS (2)
  1. AGGRENOX [Suspect]
     Indication: CEREBROVASCULAR ACCIDENT PROPHYLAXIS
     Route: 048
     Dates: end: 20070319
  2. AGGRENOX [Suspect]
     Indication: TRANSIENT ISCHAEMIC ATTACK

REACTIONS (1)
  - RASH [None]
